FAERS Safety Report 9537807 (Version 3)
Quarter: 2013Q4

REPORT INFORMATION
  Report Type: Report from Study
  Country: US (occurrence: US)
  Receive Date: 20130919
  Receipt Date: 20131025
  Transmission Date: 20140711
  Serious: Yes (Hospitalization)
  Sender: FDA-Public Use
  Company Number: US-BRISTOL-MYERS SQUIBB COMPANY-19383785

PATIENT
  Age: 56 Year
  Sex: Female
  Weight: 55.7 kg

DRUGS (2)
  1. SPRYCEL [Suspect]
     Indication: GASTROINTESTINAL STROMAL TUMOUR
     Dosage: LAST DOSE:29AUG2013
     Dates: start: 20130726
  2. IPILIMUMAB [Suspect]
     Indication: GASTROINTESTINAL STROMAL TUMOUR
     Dosage: LAST DOSE:02AUG2013?TOTAL DOSE:550MG?1100MG
     Route: 042
     Dates: start: 20130726

REACTIONS (5)
  - Dyspnoea [Recovered/Resolved]
  - Oedema peripheral [Recovered/Resolved]
  - Gastrooesophageal reflux disease [Recovered/Resolved]
  - Anaemia [Recovered/Resolved]
  - Gastric haemorrhage [Recovered/Resolved]
